FAERS Safety Report 7764925-1 (Version None)
Quarter: 2011Q3

REPORT INFORMATION
  Report Type: 
  Country: None (occurrence: None)
  Receive Date: 20110921
  Receipt Date: 20110915
  Transmission Date: 20111222
  Serious: Yes (Other)
  Sender: FDA-Public Use
  Company Number: US-ROCHE-792776

PATIENT
  Sex: Male
  Weight: 90.7 kg

DRUGS (1)
  1. ACCUTANE [Suspect]
     Route: 065
     Dates: start: 19820601, end: 19831231

REACTIONS (7)
  - IRRITABLE BOWEL SYNDROME [None]
  - DEPRESSION [None]
  - POLYP [None]
  - INTERVERTEBRAL DISC DISORDER [None]
  - INFLAMMATORY BOWEL DISEASE [None]
  - SPINAL OSTEOARTHRITIS [None]
  - COLITIS ULCERATIVE [None]
